FAERS Safety Report 6550720-8 (Version None)
Quarter: 2010Q1

REPORT INFORMATION
  Report Type: 
  Country: None (occurrence: None)
  Receive Date: 20100125
  Receipt Date: 20100111
  Transmission Date: 20100710
  Serious: Yes (Other)
  Sender: FDA-Public Use
  Company Number: PHHY2010BR01499

PATIENT
  Sex: Male
  Weight: 105 kg

DRUGS (5)
  1. DIOVAN [Suspect]
     Dosage: 80 MG, QD
     Route: 048
  2. TESTOSTERONE DECANOATE [Concomitant]
     Indication: ANDROGEN DEFICIENCY
     Dosage: 1 INJECTION EVERY 3 MONTHS
     Route: 030
     Dates: start: 20080101
  3. MAREVAN [Concomitant]
     Dosage: 5MG, 1 TABLET ON FIRST DAY
     Route: 048
  4. MAREVAN [Concomitant]
     Dosage: 5MG, 0.5 TABLET ON DAY 2 AND 3
     Route: 048
  5. MARCUMAR [Concomitant]

REACTIONS (8)
  - DAYDREAMING [None]
  - DIARRHOEA [None]
  - DIZZINESS [None]
  - FEELING ABNORMAL [None]
  - INSOMNIA [None]
  - LOSS OF LIBIDO [None]
  - MUSCULAR WEAKNESS [None]
  - PRESYNCOPE [None]
